FAERS Safety Report 8601395-5 (Version None)
Quarter: 2012Q3

REPORT INFORMATION
  Report Type: 
  Country: None (occurrence: None)
  Receive Date: 20120817
  Receipt Date: 20120814
  Transmission Date: 20120928
  Serious: Yes (Hospitalization)
  Sender: FDA-Public Use
  Company Number: FR-PFIZER INC-2012198031

PATIENT
  Age: 73 Year
  Sex: Female

DRUGS (10)
  1. XANAX [Suspect]
     Dosage: 0.5 DF, 1X/DAY
     Route: 048
  2. NOZINAN [Suspect]
     Dosage: 20 GTT, DAILY
     Route: 048
  3. DEPAMIDE [Concomitant]
     Indication: BIPOLAR DISORDER
     Dosage: 1 DF, 3X/DAY
     Route: 048
  4. NITROGLYCERIN [Concomitant]
     Indication: ANGINA PECTORIS
     Dosage: UNK
     Route: 048
  5. LEPTICUR [Suspect]
     Dosage: 1 DF, 1X/DAY
     Route: 048
  6. IMOVANE [Suspect]
     Indication: INSOMNIA
     Dosage: UNK
     Route: 048
  7. COUMADIN [Concomitant]
     Indication: THROMBOSIS
     Dosage: UNK
     Route: 048
  8. DILTIAZEM HCL [Concomitant]
     Dosage: 1 DF, DAILY
     Route: 048
  9. FERROUS FUMARATE [Concomitant]
     Dosage: UNK
     Route: 048
  10. FLAGYL [Concomitant]
     Dosage: UNK
     Route: 048

REACTIONS (3)
  - ABDOMINAL PAIN [None]
  - VOMITING [None]
  - INTESTINAL OBSTRUCTION [None]
